FAERS Safety Report 8822206 (Version 1)
Quarter: 2012Q4

REPORT INFORMATION
  Report Type: 
  Country: US (occurrence: US)
  Receive Date: 20121003
  Receipt Date: 20121003
  Transmission Date: 20130627
  Serious: No
  Sender: FDA-Public Use
  Company Number: US-PFIZER INC-2012240423

PATIENT
  Age: 62 Year
  Sex: Male
  Weight: 79.82 kg

DRUGS (6)
  1. VIAGRA [Suspect]
     Indication: SPINAL CORD INJURY
     Dosage: 50 mg, as needed
     Route: 048
     Dates: start: 201202
  2. VIAGRA [Suspect]
     Indication: SURGERY
     Dosage: 100 mg (2 tablets of 50mg), as needed
     Route: 048
     Dates: start: 2012
  3. VIAGRA [Suspect]
     Indication: ERECTILE DYSFUNCTION
  4. SILDENAFIL CITRATE [Suspect]
     Indication: SPINAL CORD INJURY
     Dosage: UNK, as needed
     Route: 048
  5. SILDENAFIL CITRATE [Suspect]
     Indication: SURGERY
  6. SILDENAFIL CITRATE [Suspect]
     Indication: ERECTILE DYSFUNCTION

REACTIONS (3)
  - Off label use [Unknown]
  - Drug ineffective [Recovered/Resolved]
  - Product packaging issue [Unknown]
